FAERS Safety Report 8813077 (Version 1)
Quarter: 2012Q4

REPORT INFORMATION
  Report Type: 
  Country: US (occurrence: US)
  Receive Date: 20120927
  Receipt Date: 20120927
  Transmission Date: 20130627
  Serious: No
  Sender: FDA-Public Use
  Company Number: US-009507513-1209USA004779

PATIENT
  Sex: Female
  Weight: 44.44 kg

DRUGS (5)
  1. MIRALAX [Suspect]
     Indication: CONSTIPATION
     Dosage: 17 g, qd
     Route: 048
     Dates: start: 2009
  2. MIRALAX [Suspect]
     Indication: MEDICAL OBSERVATION
     Dosage: 17 g, tid
     Route: 048
  3. VALIUM [Concomitant]
     Indication: PAIN
     Dosage: UNK, Unknown
  4. METHADONE HYDROCHLORIDE [Concomitant]
     Indication: PELVIC FLOOR MUSCLE WEAKNESS
     Dosage: UNK, Unknown
  5. HYDROMORPHONE [Concomitant]
     Indication: PELVIC FLOOR MUSCLE WEAKNESS
     Dosage: UNK, Unknown

REACTIONS (3)
  - Drug ineffective [Unknown]
  - Incorrect drug administration duration [Unknown]
  - Overdose [Unknown]
